FAERS Safety Report 12428832 (Version 1)
Quarter: 2016Q2

REPORT INFORMATION
  Report Type: Spontaneous
  Country: US (occurrence: None)
  Receive Date: 20160601
  Receipt Date: 20160601
  Transmission Date: 20160815
  Serious: Yes (Hospitalization)
  Sender: FDA-Public Use
  Company Number: None

PATIENT
  Age: 72 Year
  Sex: Male
  Weight: 120.5 kg

DRUGS (10)
  1. APIXABAN [Suspect]
     Active Substance: APIXABAN
     Indication: PULMONARY EMBOLISM
     Route: 048
     Dates: start: 20160523, end: 20160528
  2. POLYETHYLENE GLYCOL [Concomitant]
     Active Substance: POLYETHYLENE GLYCOLS
  3. ONDANSETRON [Concomitant]
     Active Substance: ONDANSETRON
  4. FAMCICLOVIR. [Concomitant]
     Active Substance: FAMCICLOVIR
  5. TRIAMTERENE AND HYDROCHLOROTHIAZIDE [Concomitant]
     Active Substance: HYDROCHLOROTHIAZIDE\TRIAMTERENE
  6. FINASTERIDE. [Concomitant]
     Active Substance: FINASTERIDE
  7. POTASSIUM [Concomitant]
     Active Substance: POTASSIUM
  8. TERZOSIN [Concomitant]
  9. ALLOPURINOL. [Concomitant]
     Active Substance: ALLOPURINOL
  10. PROCHLORPERAZINE. [Concomitant]
     Active Substance: PROCHLORPERAZINE

REACTIONS (2)
  - Lung infection [None]
  - Hypotension [None]

NARRATIVE: CASE EVENT DATE: 20160528
